FAERS Safety Report 6803067-6 (Version None)
Quarter: 2010Q2

REPORT INFORMATION
  Report Type: 
  Country: None (occurrence: None)
  Receive Date: 20100628
  Receipt Date: 20100616
  Transmission Date: 20101027
  Serious: No
  Sender: FDA-Public Use
  Company Number: US-B.I. PHARMACEUTICALS,INC./RIDGEFIELD-2010-BP-06882BP

PATIENT
  Sex: Female

DRUGS (6)
  1. SPIRIVA [Suspect]
     Indication: ASTHMA
     Dosage: 18 MCG
     Route: 055
     Dates: start: 20090101
  2. PRILOSEC [Concomitant]
     Indication: HIATUS HERNIA
  3. RANITIDINE [Concomitant]
     Indication: HIATUS HERNIA
  4. QVAR 40 [Concomitant]
     Indication: ASTHMA
  5. NASONEX [Concomitant]
     Indication: SINUS DISORDER
  6. VITAMINS [Concomitant]
     Indication: PROPHYLAXIS

REACTIONS (2)
  - COUGH [None]
  - MALAISE [None]
